FAERS Safety Report 8925953 (Version 3)
Quarter: 2013Q2

REPORT INFORMATION
  Report Type: Spontaneous
  Country: AT (occurrence: AT)
  Receive Date: 20121126
  Receipt Date: 20130618
  Transmission Date: 20140414
  Serious: Yes (Hospitalization)
  Sender: FDA-Public Use
  Company Number: AT-JNJFOC-20121014011

PATIENT
  Age: 26 Year
  Sex: Male
  Weight: 95 kg

DRUGS (3)
  1. STELARA [Suspect]
     Indication: PSORIASIS
     Dosage: DOSE WAS DELAYED
     Route: 058
     Dates: start: 20120605
  2. STELARA [Suspect]
     Indication: PSORIASIS
     Dosage: DOSE DELAYED
     Route: 058
     Dates: start: 20110630
  3. GLUCOCORTICOIDS [Concomitant]
     Route: 065

REACTIONS (3)
  - Erysipelas [Recovering/Resolving]
  - Pyoderma gangrenosum [Unknown]
  - Infection [Unknown]
